FAERS Safety Report 22970241 (Version 3)
Quarter: 2023Q4

REPORT INFORMATION
  Report Type: Spontaneous
  Country: CH (occurrence: CH)
  Receive Date: 20230922
  Receipt Date: 20231003
  Transmission Date: 20240109
  Serious: Yes (Hospitalization, Other)
  Sender: FDA-Public Use
  Company Number: None

PATIENT
  Age: 65 Year
  Sex: Female
  Weight: 50 kg

DRUGS (3)
  1. YERVOY [Suspect]
     Active Substance: IPILIMUMAB
     Indication: Metastatic renal cell carcinoma
     Dosage: DOSAGE UNKNOWN, IN TOTAL 2 CYCLES GIVEN , EXACT DATE OF SECOND CYCLE UNKNOWN ; CYCLICAL
     Route: 041
     Dates: start: 20230705, end: 202308
  2. OPDIVO [Suspect]
     Active Substance: NIVOLUMAB
     Indication: Metastatic renal cell carcinoma
     Dosage: DOSAGE UNKNOWN, IN TOTAL 2 CYCLES GIVEN , EXACT DATE OF SECOND CYCLE UNKNOWN ; CYCLICAL
     Route: 041
     Dates: start: 20230705, end: 202308
  3. AMLODIPINE [Concomitant]
     Active Substance: AMLODIPINE BESYLATE
     Indication: Hypertension
     Dosage: SINCE YEARS
     Route: 048

REACTIONS (2)
  - Immune-mediated hepatitis [Not Recovered/Not Resolved]
  - Pancytopenia [Unknown]

NARRATIVE: CASE EVENT DATE: 20230815
